FAERS Safety Report 9706244 (Version 1)
Quarter: 2013Q4

REPORT INFORMATION
  Report Type: Report from Study
  Country: US (occurrence: US)
  Receive Date: 20131125
  Receipt Date: 20131125
  Transmission Date: 20140711
  Serious: Yes (Hospitalization)
  Sender: FDA-Public Use
  Company Number: US-ROCHE-1303230

PATIENT
  Sex: Male

DRUGS (8)
  1. CLONAZEPAM [Suspect]
     Indication: PRODUCT USED FOR UNKNOWN INDICATION
     Dosage: DISINTEGRATING TABLET
     Route: 048
  2. CABERGOLINE [Concomitant]
     Indication: HYPERPROLACTINAEMIA
     Dosage: 0.5MGX2
     Route: 048
  3. LEXAPRO [Concomitant]
     Dosage: BEDTIME
     Route: 048
  4. LEVOTHYROXINE [Concomitant]
     Indication: HYPOTHYROIDISM
     Dosage: EVERY MORNING
     Route: 048
  5. METFORMIN [Concomitant]
     Indication: DIABETES MELLITUS
     Dosage: REPORTED AS: METFORMIN XR, 500MGX2
     Route: 048
  6. TESTOSTERONE ENANTHATE [Concomitant]
     Indication: HYPOGONADISM MALE
     Dosage: 200 MG/ML
     Route: 030
  7. LANSOPRAZOLE [Concomitant]
     Indication: OESOPHAGITIS
  8. TRAZODONE [Concomitant]
     Dosage: PM
     Route: 048

REACTIONS (7)
  - Diabetes mellitus [Unknown]
  - Prolactin-producing pituitary tumour [Unknown]
  - Emotional disorder [Unknown]
  - Hunger [Unknown]
  - Insulin-like growth factor decreased [Unknown]
  - Chromaturia [Unknown]
  - Dizziness [Unknown]
